FAERS Safety Report 10565814 (Version 3)
Quarter: 2015Q1

REPORT INFORMATION
  Report Type: Report from Study
  Country: JP (occurrence: JP)
  Receive Date: 20141105
  Receipt Date: 20150225
  Transmission Date: 20150720
  Serious: Yes (Hospitalization, Other)
  Sender: FDA-Public Use
  Company Number: JP-AMGEN-JPNCT2014085473

PATIENT
  Age: 31 Year
  Sex: Female
  Weight: 92 kg

DRUGS (8)
  1. FERRUM [Concomitant]
     Active Substance: FERROUS FUMARATE
     Indication: HYPOCHROMIC ANAEMIA
     Dosage: UNK
     Route: 048
  2. VENOGLOBULIN-IH [Concomitant]
     Indication: IMMUNE THROMBOCYTOPENIC PURPURA
     Dosage: 30 MG, UNK
     Route: 065
     Dates: start: 20130907, end: 20130911
  3. FERRUM                             /00023505/ [Concomitant]
     Indication: HYPOCHROMIC ANAEMIA
     Dosage: UNK
     Route: 048
  4. PURSENNID [Concomitant]
     Active Substance: SENNOSIDES A AND B
     Indication: CONSTIPATION
     Dosage: UNK
     Route: 048
  5. REVOLADE [Concomitant]
     Active Substance: ELTROMBOPAG
     Indication: IMMUNE THROMBOCYTOPENIC PURPURA
     Dosage: 50 MG, UNK
     Route: 048
     Dates: start: 20120628, end: 20130919
  6. LECICARBON                         /05510501/ [Concomitant]
     Indication: CONSTIPATION
     Dosage: UNK
     Route: 054
  7. ROMIPLOSTIM - KHK [Suspect]
     Active Substance: ROMIPLOSTIM
     Indication: IMMUNE THROMBOCYTOPENIC PURPURA
     Dosage: 3 MUG, QWK
     Route: 058
     Dates: start: 20130613
  8. PURSENNID                          /00142207/ [Concomitant]
     Active Substance: SENNOSIDES A AND B
     Indication: CONSTIPATION
     Dosage: UNK
     Route: 048

REACTIONS (3)
  - Portal vein thrombosis [Recovered/Resolved]
  - White blood cell count increased [Recovered/Resolved]
  - Thrombocytosis [Recovered/Resolved]

NARRATIVE: CASE EVENT DATE: 20130913
